FAERS Safety Report 5709502-9 (Version None)
Quarter: 2008Q2

REPORT INFORMATION
  Report Type: 
  Country: None (occurrence: None)
  Receive Date: 20080418
  Receipt Date: 20080409
  Transmission Date: 20081010
  Serious: Yes (Hospitalization)
  Sender: FDA-Public Use
  Company Number: US-BAYER-200811430BCC

PATIENT
  Sex: Female

DRUGS (1)
  1. ALEVE (CAPLET) [Suspect]
     Indication: DRUG USE FOR UNKNOWN INDICATION
     Dosage: AS USED: 3/4 DF
     Route: 048
     Dates: start: 20080101

REACTIONS (2)
  - ABDOMINAL PAIN UPPER [None]
  - OESOPHAGEAL HAEMORRHAGE [None]
